FAERS Safety Report 19706453 (Version 4)
Quarter: 2022Q2

REPORT INFORMATION
  Report Type: Report from Study
  Country: ES (occurrence: None)
  Receive Date: 20210817
  Receipt Date: 20220610
  Transmission Date: 20220721
  Serious: Yes (Hospitalization)
  Sender: FDA-Public Use
  Company Number: ES-ROCHE-2872790

PATIENT
  Age: 78 Year
  Sex: Male
  Weight: 75 kg

DRUGS (19)
  1. ATEZOLIZUMAB [Suspect]
     Active Substance: ATEZOLIZUMAB
     Indication: Non-small cell lung cancer
     Dosage: ON 20/APR/2021, HE RECEIVED MOST RECENT DOSE OF ATEZOLIZUMAB PRIOR TO ONSET OF SERIOUS ADVERSE EVENT
     Route: 041
     Dates: start: 20200425, end: 20210420
  2. CABOZANTINIB [Suspect]
     Active Substance: CABOZANTINIB
     Indication: Non-small cell lung cancer
     Dosage: ON 07/JUL/2021, HE RECEIVED MOST RECENT DOSE OF CABOZANTINIB PRIOR TO ONSET OF SERIOUS ADVERSE EVENT
     Route: 048
     Dates: start: 20200425, end: 20210118
  3. CABOZANTINIB [Suspect]
     Active Substance: CABOZANTINIB
     Route: 048
     Dates: start: 20210119, end: 20210707
  4. CABOZANTINIB [Suspect]
     Active Substance: CABOZANTINIB
     Route: 048
     Dates: start: 20210722
  5. FENTANYL [Suspect]
     Active Substance: FENTANYL
     Indication: Product used for unknown indication
     Route: 065
     Dates: start: 20210602, end: 20210710
  6. FOLIC ACID [Concomitant]
     Active Substance: FOLIC ACID
  7. FUROSEMIDE [Concomitant]
     Active Substance: FUROSEMIDE
  8. GLICLAZIDE [Concomitant]
     Active Substance: GLICLAZIDE
  9. SITAGLIPTIN [Concomitant]
     Active Substance: SITAGLIPTIN
  10. MANIDIPINE [Concomitant]
     Active Substance: MANIDIPINE
  11. SIMVASTATIN [Concomitant]
     Active Substance: SIMVASTATIN
  12. TAMSULOSIN [Concomitant]
     Active Substance: TAMSULOSIN
  13. ACETAMINOPHEN [Concomitant]
     Active Substance: ACETAMINOPHEN
  14. LOPERAMIDE [Concomitant]
     Active Substance: LOPERAMIDE
  15. TINZAPARIN [Concomitant]
     Active Substance: TINZAPARIN
  16. CALCIUM CARBONATE\CHOLECALCIFEROL [Concomitant]
     Active Substance: CALCIUM CARBONATE\CHOLECALCIFEROL
  17. LEVOTHYROXINE [Concomitant]
     Active Substance: LEVOTHYROXINE
  18. MORPHINE [Concomitant]
     Active Substance: MORPHINE
  19. DEXAMETHASONE [Concomitant]
     Active Substance: DEXAMETHASONE

REACTIONS (3)
  - Nausea [Recovered/Resolved]
  - COVID-19 [Recovered/Resolved]
  - Back pain [Recovered/Resolved]

NARRATIVE: CASE EVENT DATE: 20210707
